FAERS Safety Report 7562298-0 (Version None)
Quarter: 2011Q2

REPORT INFORMATION
  Report Type: 
  Country: None (occurrence: None)
  Receive Date: 20110622
  Receipt Date: 20110615
  Transmission Date: 20111010
  Serious: Yes (Life-Threatening)
  Sender: FDA-Public Use
  Company Number: DE-ELI_LILLY_AND_COMPANY-DE201106004405

PATIENT
  Age: 39 Year
  Sex: Male

DRUGS (4)
  1. EFFIENT [Suspect]
     Dosage: 10 MG, MAINTENANCE DOSE
     Dates: start: 20110615, end: 20110615
  2. HEPARIN [Concomitant]
  3. EFFIENT [Suspect]
     Indication: MYOCARDIAL INFARCTION
     Dosage: 60 MG, LOADING DOSE
     Dates: start: 20110614, end: 20110614
  4. INTEGRILIN [Concomitant]

REACTIONS (1)
  - VENTRICULAR FIBRILLATION [None]
